FAERS Safety Report 24923864 (Version 1)
Quarter: 2025Q1

REPORT INFORMATION
  Report Type: Spontaneous
  Country: GB (occurrence: GB)
  Receive Date: 20250204
  Receipt Date: 20250204
  Transmission Date: 20250409
  Serious: Yes (Hospitalization, Disabling, Other)
  Sender: SANOFI AVENTIS
  Company Number: GB-SA-2025SA033335

PATIENT
  Age: 60 Year
  Sex: Male
  Weight: 97 kg

DRUGS (20)
  1. LEFLUNOMIDE [Suspect]
     Active Substance: LEFLUNOMIDE
     Indication: Rheumatoid arthritis
  2. LEVOFLOXACIN [Concomitant]
     Active Substance: LEVOFLOXACIN
  3. PREDNISONE [Concomitant]
     Active Substance: PREDNISONE
     Indication: Rheumatoid arthritis
  4. ADALIMUMAB [Concomitant]
     Active Substance: ADALIMUMAB
     Indication: Rheumatoid arthritis
  5. METHOTREXATE [Concomitant]
     Active Substance: METHOTREXATE
     Indication: Rheumatoid arthritis
     Dosage: 20 MG, QW
  6. METRONIDAZOLE [Concomitant]
     Active Substance: METRONIDAZOLE
     Indication: Rheumatoid arthritis
  7. ARTHROTEC [Concomitant]
     Active Substance: DICLOFENAC SODIUM\MISOPROSTOL
     Indication: Rheumatoid arthritis
     Dosage: 400 MG, QD
     Route: 048
  8. LYRICA [Concomitant]
     Active Substance: PREGABALIN
  9. PLAQUENIL [Concomitant]
     Active Substance: HYDROXYCHLOROQUINE SULFATE
     Indication: Rheumatoid arthritis
     Dosage: 400 MG, QD
     Route: 048
  10. BISOPROLOL FUMARATE [Concomitant]
     Active Substance: BISOPROLOL FUMARATE
  11. HUMIRA [Concomitant]
     Active Substance: ADALIMUMAB
     Indication: Rheumatoid arthritis
  12. CELEBREX [Concomitant]
     Active Substance: CELECOXIB
     Dosage: 200 MG, QD
     Route: 048
  13. CECLOR [Concomitant]
     Active Substance: CEFACLOR
  14. NORFLOXACIN [Concomitant]
     Active Substance: NORFLOXACIN
  15. SULFASALAZINE [Concomitant]
     Active Substance: SULFASALAZINE
     Indication: Rheumatoid arthritis
  16. DEMEROL [Concomitant]
     Active Substance: MEPERIDINE HYDROCHLORIDE
     Indication: Rheumatoid arthritis
  17. ERYTHROMYCIN [Concomitant]
     Active Substance: ERYTHROMYCIN
  18. MEPERIDINE HYDROCHLORIDE [Concomitant]
     Active Substance: MEPERIDINE HYDROCHLORIDE
     Indication: Rheumatoid arthritis
  19. DICLOFENAC SODIUM [Concomitant]
     Active Substance: DICLOFENAC SODIUM
     Indication: Rheumatoid arthritis
  20. MISOPROSTOL [Concomitant]
     Active Substance: MISOPROSTOL

REACTIONS (20)
  - Platelet count increased [Unknown]
  - Drug hypersensitivity [Not Recovered/Not Resolved]
  - International normalised ratio fluctuation [Not Recovered/Not Resolved]
  - Lyme disease [Not Recovered/Not Resolved]
  - Bloody discharge [Not Recovered/Not Resolved]
  - Fatigue [Not Recovered/Not Resolved]
  - Hypoaesthesia [Not Recovered/Not Resolved]
  - Iron deficiency [Not Recovered/Not Resolved]
  - Pain in extremity [Not Recovered/Not Resolved]
  - Red blood cell sedimentation rate increased [Not Recovered/Not Resolved]
  - Secretion discharge [Not Recovered/Not Resolved]
  - Malaise [Not Recovered/Not Resolved]
  - Staphylococcal infection [Unknown]
  - Infection [Not Recovered/Not Resolved]
  - Nausea [Not Recovered/Not Resolved]
  - Vomiting [Not Recovered/Not Resolved]
  - Dizziness [Not Recovered/Not Resolved]
  - Drug intolerance [Unknown]
  - Drug ineffective [Unknown]
  - Therapeutic product effect incomplete [Unknown]
